FAERS Safety Report 22094377 (Version 2)
Quarter: 2023Q1

REPORT INFORMATION
  Report Type: Spontaneous
  Country: US (occurrence: US)
  Receive Date: 20230314
  Receipt Date: 20230314
  Transmission Date: 20230418
  Serious: No
  Sender: FDA-Public Use
  Company Number: US-Dermavant-000343

PATIENT
  Age: 60 Year
  Sex: Male

DRUGS (2)
  1. TAPINAROF [Suspect]
     Active Substance: TAPINAROF
     Indication: Psoriasis
     Dosage: AREA OF APPLICATION: PALMS OF HANDS AND SOLES OF FEET
     Route: 061
     Dates: start: 202206, end: 202209
  2. TAPINAROF [Suspect]
     Active Substance: TAPINAROF
     Indication: Psoriasis
     Route: 061
     Dates: start: 202210, end: 202211

REACTIONS (11)
  - Drug ineffective [Unknown]
  - Rash [Recovered/Resolved]
  - Skin fissures [Recovered/Resolved]
  - Erythema [Recovered/Resolved]
  - Skin hypertrophy [Recovered/Resolved]
  - Pain of skin [Recovered/Resolved]
  - Skin discolouration [Not Recovered/Not Resolved]
  - Swelling face [Recovered/Resolved]
  - Swelling of eyelid [Recovered/Resolved]
  - Off label use [Recovered/Resolved]
  - Scab [Unknown]

NARRATIVE: CASE EVENT DATE: 20220101
